FAERS Safety Report 4752494-X (Version None)
Quarter: 2005Q3

REPORT INFORMATION
  Report Type: 
  Country: None (occurrence: None)
  Receive Date: 20050825
  Receipt Date: 20050607
  Transmission Date: 20060218
  Serious: Yes (Life-Threatening)
  Sender: FDA-Public Use
  Company Number: DE-ROCHE-407159

PATIENT
  Age: 68 Year
  Sex: Female
  Weight: 61.1 kg

DRUGS (9)
  1. PEG-INTERFERON ALFA 2A (RO 25-8310) [Suspect]
     Route: 058
     Dates: start: 20050316, end: 20050601
  2. RIBAVIRIN [Suspect]
     Route: 048
     Dates: start: 20050316, end: 20050602
  3. ESCITALOPRAM OXALATE [Concomitant]
     Indication: DEPRESSION
     Route: 048
     Dates: start: 20050316
  4. UNIDENTIFIED DRUGS [Concomitant]
     Dosage: TRADE NAME: CALCIUM 500 HEUMANN, FIZZY TABLET.
     Route: 048
  5. ISOSORBIDE DINITRATE [Concomitant]
     Dosage: TRADE NAME: ISDN SANDOZ.
     Route: 048
  6. METOCLOPRAMIDE [Concomitant]
     Dosage: TRADE NAME: MCP SANDOZ, TAKEN WHEN NEEDED.
  7. NITROGLYCERIN [Concomitant]
     Dosage: TRADE NAME: NITROLINGUAL POCKET SOLUTION, TAKEN WHEN NEEDED.
  8. OMEPRAZOLE [Concomitant]
     Dosage: TRADE NAME: OMEPRAZOLE SANDOZ, TAKEN WHEN NEEDED.
  9. ROCALTROL [Concomitant]

REACTIONS (9)
  - ANAEMIA [None]
  - CONDITION AGGRAVATED [None]
  - DIVERTICULUM INTESTINAL [None]
  - DIVERTICULUM OESOPHAGEAL [None]
  - HEART RATE INCREASED [None]
  - HEPATIC CIRRHOSIS [None]
  - NORMOCHROMIC NORMOCYTIC ANAEMIA [None]
  - REFLUX OESOPHAGITIS [None]
  - SPLENOMEGALY [None]
